FAERS Safety Report 24874063 (Version 1)
Quarter: 2025Q1

REPORT INFORMATION
  Report Type: Spontaneous
  Country: US (occurrence: None)
  Receive Date: 20250121
  Receipt Date: 20250121
  Transmission Date: 20250409
  Serious: Yes (Life-Threatening, Hospitalization, Disabling, Other)
  Sender: FDA-CTU
  Company Number: None

PATIENT
  Age: 61 Year
  Sex: Female
  Weight: 53.1 kg

DRUGS (36)
  1. PRIVIGEN [Suspect]
     Active Substance: HUMAN IMMUNOGLOBULIN G
     Indication: Hypogammaglobulinaemia
     Route: 058
     Dates: start: 20241220, end: 20250121
  2. ASPIRIN [Concomitant]
     Active Substance: ASPIRIN
  3. XANAX [Concomitant]
     Active Substance: ALPRAZOLAM
  4. ALBUTEROL [Concomitant]
     Active Substance: ALBUTEROL
  5. AIRSUPRA [Concomitant]
     Active Substance: ALBUTEROL SULFATE\BUDESONIDE
  6. BUDESONIDE [Concomitant]
     Active Substance: BUDESONIDE
  7. CORTISONE CREAMS [Concomitant]
  8. DILTEZEM [Concomitant]
  9. DONNATAL [Concomitant]
     Active Substance: ATROPINE SULFATE\HYOSCYAMINE SULFATE\PHENOBARBITAL\SCOPOLAMINE HYDROBROMIDE
  10. DUONEB [Concomitant]
     Active Substance: ALBUTEROL SULFATE\IPRATROPIUM BROMIDE
  11. DULERA [Suspect]
     Active Substance: FORMOTEROL FUMARATE DIHYDRATE\MOMETASONE FUROATE
  12. DUCOSATE GEL [Concomitant]
  13. LAMOTRIGINE [Concomitant]
     Active Substance: LAMOTRIGINE
  14. LIDOCAINE [Concomitant]
     Active Substance: LIDOCAINE
  15. VISCOUS [Concomitant]
  16. LISIONPRIL [Concomitant]
  17. MIRALAX [Concomitant]
     Active Substance: POLYETHYLENE GLYCOL 3350
  18. ONDANSETRON [Concomitant]
     Active Substance: ONDANSETRON
  19. PANTOPRAZOLE [Concomitant]
     Active Substance: PANTOPRAZOLE
  20. FAMOTAINE [Concomitant]
  21. PIOCARPINE [Concomitant]
  22. ROSUVASTATIN [Concomitant]
     Active Substance: ROSUVASTATIN
  23. SODIUM CHLORIDE [Concomitant]
     Active Substance: SODIUM CHLORIDE
  24. TEZSPIRE [Concomitant]
     Active Substance: TEZEPELUMAB-EKKO
  25. TRAZODONE [Concomitant]
     Active Substance: TRAZODONE HYDROCHLORIDE
  26. TRINTELLIX [Concomitant]
     Active Substance: VORTIOXETINE HYDROBROMIDE
  27. TYLENOL [Concomitant]
     Active Substance: ACETAMINOPHEN
  28. TRIAMCINOLONE ACETONE CREAM [Concomitant]
  29. VITAMIN B12 [Concomitant]
     Active Substance: CYANOCOBALAMIN
  30. VITAMIN D3 [Concomitant]
     Active Substance: CHOLECALCIFEROL
  31. VITAMIN C [Concomitant]
     Active Substance: ASCORBIC ACID
  32. ASPERCREAM [Concomitant]
  33. UNSPECIFIED INGREDIENT [Concomitant]
     Active Substance: UNSPECIFIED INGREDIENT
  34. FLONASE [Concomitant]
     Active Substance: FLUTICASONE PROPIONATE
  35. ISOTONIC SODIUM CHLORIDE SOLUTION [Concomitant]
     Active Substance: SODIUM CHLORIDE
  36. NURTEC ODT [Concomitant]
     Active Substance: RIMEGEPANT SULFATE

REACTIONS (7)
  - Back pain [None]
  - Infusion related reaction [None]
  - Headache [None]
  - Vomiting [None]
  - Contusion [None]
  - Loss of consciousness [None]
  - Asthmatic crisis [None]

NARRATIVE: CASE EVENT DATE: 20241220
